FAERS Safety Report 7965212-9 (Version None)
Quarter: 2011Q4

REPORT INFORMATION
  Report Type: 
  Country: None (occurrence: None)
  Receive Date: 20111206
  Receipt Date: 20111206
  Transmission Date: 20120403
  Serious: No
  Sender: FDA-Public Use
  Company Number: None

PATIENT
  Age: 23 Year
  Sex: Female
  Weight: 64.9551 kg

DRUGS (1)
  1. DROSPIRENONE/ETHINYL ESTRADIOL [Suspect]

REACTIONS (1)
  - NAUSEA [None]
